FAERS Safety Report 6782877-8 (Version None)
Quarter: 2010Q2

REPORT INFORMATION
  Report Type: 
  Country: None (occurrence: None)
  Receive Date: 20100617
  Receipt Date: 20100608
  Transmission Date: 20101027
  Serious: Yes (Hospitalization)
  Sender: FDA-Public Use
  Company Number: 611431

PATIENT
  Age: 53 Year
  Sex: Male

DRUGS (11)
  1. FENTANYL CITRATE [Suspect]
     Indication: GENERAL ANAESTHESIA
     Dosage: 325 ?G MICROGRAM(S),  INTRAVENOUS
     Route: 042
  2. VERSED [Suspect]
     Indication: GENERAL ANAESTHESIA
     Dosage: 1 MG MILLIGRAM(S), INTRAVENOUS
     Route: 042
  3. DIPRIVAN [Suspect]
     Indication: GENERAL ANAESTHESIA
     Dosage: 1  MG MILLIGRAM(S), INTRAVENOUS
     Route: 042
  4. ULTANE [Suspect]
     Indication: MAINTENANCE OF ANAESTHESIA
  5. ROBINUL [Concomitant]
  6. DILAUDID [Concomitant]
  7. (ANCEF /00288502/) [Concomitant]
  8. (ZOFRAN	 /00955301/) [Concomitant]
  9. NORMODYNE [Concomitant]
  10. (PARENTERAL) [Concomitant]
  11. (EPHEDRINE SULFATE) [Concomitant]

REACTIONS (6)
  - COMPARTMENT SYNDROME [None]
  - FEEDING TUBE COMPLICATION [None]
  - HAEMATOMA [None]
  - HYPERTENSION [None]
  - MUSCLE NECROSIS [None]
  - OEDEMA [None]
